FAERS Safety Report 13549861 (Version 1)
Quarter: 2017Q2

REPORT INFORMATION
  Report Type: Spontaneous
  Country: RO (occurrence: RO)
  Receive Date: 20170516
  Receipt Date: 20170516
  Transmission Date: 20170830
  Serious: Yes (Hospitalization)
  Sender: FDA-Public Use
  Company Number: RO-SA-2017SA085176

PATIENT
  Sex: Female

DRUGS (1)
  1. RIFAMPICIN [Suspect]
     Active Substance: RIFAMPIN
     Indication: VIRAL UPPER RESPIRATORY TRACT INFECTION
     Dosage: LARGE DOSES
     Route: 065

REACTIONS (12)
  - Haemoglobin decreased [Recovering/Resolving]
  - Toxicity to various agents [Unknown]
  - Pallor [Unknown]
  - Intentional product misuse [Unknown]
  - Confusional state [Unknown]
  - Pain [Unknown]
  - Chromaturia [Unknown]
  - Off label use [Unknown]
  - Hepatic failure [Unknown]
  - Tear discolouration [Unknown]
  - Dyspnoea [Unknown]
  - Diarrhoea [Unknown]
